FAERS Safety Report 11394742 (Version 1)
Quarter: 2015Q3

REPORT INFORMATION
  Report Type: Spontaneous
  Country: PT (occurrence: PT)
  Receive Date: 20150819
  Receipt Date: 20150819
  Transmission Date: 20151125
  Serious: Yes (Other)
  Sender: FDA-Public Use
  Company Number: PT-ACTAVIS-2015-17350

PATIENT
  Age: 68 Year
  Sex: Male

DRUGS (6)
  1. FUROSEMIDA                         /00032601/ [Concomitant]
     Active Substance: FUROSEMIDE
     Indication: PRODUCT USED FOR UNKNOWN INDICATION
     Dosage: 20 MG, CYCLICAL
     Route: 042
     Dates: start: 20150630, end: 20150630
  2. RANITIDINE [Concomitant]
     Active Substance: RANITIDINE\RANITIDINE HYDROCHLORIDE
     Indication: PRODUCT USED FOR UNKNOWN INDICATION
     Dosage: 50 MG, CYCLICAL
     Route: 042
     Dates: start: 20150630, end: 20150630
  3. CLEMASTINA [Concomitant]
     Indication: PRODUCT USED FOR UNKNOWN INDICATION
     Dosage: 2 MG, CYCLICAL
     Route: 042
     Dates: start: 20150630, end: 20150630
  4. DEXAMETASONA                       /00016001/ [Concomitant]
     Indication: PRODUCT USED FOR UNKNOWN INDICATION
     Dosage: 20 MG, CYCLICAL
     Route: 042
     Dates: start: 20150630, end: 20150630
  5. ONDANSETROM                        /00955301/ [Concomitant]
     Indication: PRODUCT USED FOR UNKNOWN INDICATION
     Dosage: 8 MG, CYCLICAL
     Route: 042
     Dates: start: 20150630, end: 20150630
  6. DOCETAXEL ACTAVIS [Suspect]
     Active Substance: DOCETAXEL
     Indication: LUNG NEOPLASM MALIGNANT
     Dosage: 65 MG, CYCLICAL
     Route: 042
     Dates: start: 20150630, end: 20150630

REACTIONS (2)
  - Hyperhidrosis [Recovered/Resolved]
  - Erythema [Recovered/Resolved]

NARRATIVE: CASE EVENT DATE: 20150630
